FAERS Safety Report 4986789-1 (Version None)
Quarter: 2006Q2

REPORT INFORMATION
  Report Type: 
  Country: None (occurrence: None)
  Receive Date: 20060428
  Receipt Date: 20060418
  Transmission Date: 20061013
  Serious: Yes (Hospitalization)
  Sender: FDA-Public Use
  Company Number: US-MERCK-0604USA03215

PATIENT
  Age: 39 Year
  Sex: Male
  Weight: 73 kg

DRUGS (5)
  1. VIOXX [Suspect]
     Indication: OSTEOSCLEROSIS
     Route: 048
     Dates: start: 19990101, end: 20000101
  2. [THERAPY UNSPECIFIED] [Concomitant]
     Route: 065
  3. HYDROCODONE BITARTRATE [Concomitant]
     Route: 065
  4. TRAMADOLOR [Concomitant]
     Route: 065
  5. VICODIN [Concomitant]
     Route: 065

REACTIONS (7)
  - ASTHENIA [None]
  - BONE PAIN [None]
  - CHEST PAIN [None]
  - HYPERTENSION [None]
  - LOSS OF CONSCIOUSNESS [None]
  - MYALGIA [None]
  - PAIN [None]
